FAERS Safety Report 14172256 (Version 2)
Quarter: 2017Q4

REPORT INFORMATION
  Report Type: Spontaneous
  Country: IN (occurrence: IN)
  Receive Date: 20171109
  Receipt Date: 20171114
  Transmission Date: 20180321
  Serious: Yes (Other)
  Sender: FDA-Public Use
  Company Number: IN-AMGEN-INDSP2017168323

PATIENT

DRUGS (1)
  1. ENBREL [Suspect]
     Active Substance: ETANERCEPT
     Indication: PRODUCT USED FOR UNKNOWN INDICATION
     Dosage: 50 (UNITS NOT PROVIDED), UNK
     Route: 065

REACTIONS (3)
  - Oropharyngeal pain [Unknown]
  - Asthma [Unknown]
  - Pneumonia [Unknown]
